FAERS Safety Report 5545234-8 (Version None)
Quarter: 2007Q4

REPORT INFORMATION
  Report Type: 
  Country: None (occurrence: None)
  Receive Date: 20071123
  Receipt Date: 20070123
  Transmission Date: 20080405
  Serious: Yes (Hospitalization)
  Sender: FDA-Public Use
  Company Number: US-JNJFOC-20061005882

PATIENT
  Age: 23 Year
  Sex: Female
  Weight: 70.5343 kg

DRUGS (2)
  1. LEVAQUIN [Suspect]
     Indication: STOMATITIS
     Dosage: 500 MG, 4 IN 1 DAY,
     Dates: start: 20061023
  2. TYLEX (TYLEX) UNSPECIFIED [Concomitant]

REACTIONS (1)
  - SEDATION [None]
